FAERS Safety Report 5031431-7 (Version None)
Quarter: 2006Q2

REPORT INFORMATION
  Report Type: 
  Country: None (occurrence: None)
  Receive Date: 20060616
  Receipt Date: 20060613
  Transmission Date: 20061013
  Serious: Yes (Death)
  Sender: FDA-Public Use
  Company Number: 0512-670

PATIENT
  Age: 1 Day
  Sex: Male
  Weight: 3200 kg

DRUGS (3)
  1. CUROSURF 120 MG/ 1.5 ML [Suspect]
     Indication: RESPIRATORY DISTRESS
     Dosage: INTRATRACHEAL
     Route: 039
  2. VALIUM [Concomitant]
  3. DIAZEPAM [Concomitant]

REACTIONS (19)
  - C-REACTIVE PROTEIN INCREASED [None]
  - CARDIAC ARREST NEONATAL [None]
  - DEATH NEONATAL [None]
  - DISSEMINATED INTRAVASCULAR COAGULATION [None]
  - EMPHYSEMA [None]
  - HYPERGLYCAEMIA [None]
  - JAUNDICE NEONATAL [None]
  - LEUKOPENIA NEONATAL [None]
  - LYMPHOCYTE PERCENTAGE INCREASED [None]
  - NEONATAL MULTI-ORGAN FAILURE [None]
  - NEONATAL RESPIRATORY DISTRESS SYNDROME [None]
  - NEUTROPHIL PERCENTAGE DECREASED [None]
  - OLIGURIA [None]
  - PATENT DUCTUS ARTERIOSUS [None]
  - PERSISTENT FOETAL CIRCULATION [None]
  - PNEUMOCOCCAL INFECTION [None]
  - PNEUMOPERITONEUM [None]
  - SHOCK [None]
  - TRICUSPID VALVE INCOMPETENCE [None]
